FAERS Safety Report 4426603-6 (Version None)
Quarter: 2004Q3

REPORT INFORMATION
  Report Type: 
  Country: None (occurrence: None)
  Receive Date: 20040812
  Receipt Date: 20040812
  Transmission Date: 20050211
  Serious: Yes (Other)
  Sender: FDA-Public Use
  Company Number: None

PATIENT
  Age: 30 Year
  Sex: Female

DRUGS (1)
  1. ROSADERM CLEANSER [Suspect]
     Indication: ACNE
     Dosage: WASH BID
     Dates: start: 20031101, end: 20040701

REACTIONS (2)
  - ACNE [None]
  - CONDITION AGGRAVATED [None]
